FAERS Safety Report 6040373-X (Version None)
Quarter: 2009Q1

REPORT INFORMATION
  Report Type: 
  Country: None (occurrence: None)
  Receive Date: 20090116
  Receipt Date: 20080229
  Transmission Date: 20090719
  Serious: No
  Sender: FDA-Public Use
  Company Number: US-BRISTOL-MYERS SQUIBB COMPANY-14097323

PATIENT
  Age: 42 Year
  Sex: Male
  Weight: 145 kg

DRUGS (6)
  1. ABILIFY [Suspect]
     Indication: SCHIZOPHRENIA, PARANOID TYPE
     Dates: start: 20070101
  2. ZYPREXA [Concomitant]
  3. WELLBUTRIN [Concomitant]
  4. KLONOPIN [Concomitant]
  5. TRICOR [Concomitant]
  6. ALLOPURINOL [Concomitant]

REACTIONS (1)
  - DYSPEPSIA [None]
